FAERS Safety Report 8840760 (Version 1)
Quarter: 2012Q4

REPORT INFORMATION
  Report Type: 
  Country: IT (occurrence: IT)
  Receive Date: 20121015
  Receipt Date: 20121015
  Transmission Date: 20130627
  Serious: Yes (Other)
  Sender: FDA-Public Use
  Company Number: IT-ELI_LILLY_AND_COMPANY-IT201210002966

PATIENT
  Age: 66 Year
  Sex: Male
  Weight: 74 kg

DRUGS (7)
  1. EFIENT [Suspect]
     Indication: ACUTE MYOCARDIAL INFARCTION
     Dosage: 60 mg, single
     Dates: start: 20120930, end: 20120930
  2. EFIENT [Suspect]
     Dosage: `10 mg, qd
     Dates: start: 20121001, end: 20121008
  3. REOPRO [Concomitant]
     Indication: ACUTE MYOCARDIAL INFARCTION
  4. ASPIRINA [Concomitant]
  5. SELOKEN [Concomitant]
  6. TRIATEC [Concomitant]
  7. TORVAST [Concomitant]

REACTIONS (1)
  - Transient ischaemic attack [Recovered/Resolved]
